FAERS Safety Report 6569007-2 (Version None)
Quarter: 2010Q1

REPORT INFORMATION
  Report Type: 
  Country: None (occurrence: None)
  Receive Date: 20100203
  Receipt Date: 20100126
  Transmission Date: 20100710
  Serious: Yes (Hospitalization, Other)
  Sender: FDA-Public Use
  Company Number: DE-ABBOTT-10P-062-0622856-00

PATIENT
  Sex: Female

DRUGS (8)
  1. HUMIRA [Suspect]
     Indication: RHEUMATOID ARTHRITIS
     Dates: start: 20071001, end: 20080901
  2. HUMIRA [Suspect]
     Dates: start: 20081201
  3. ETANERCEPT [Concomitant]
     Indication: DRUG USE FOR UNKNOWN INDICATION
     Dates: start: 20040201
  4. ETANERCEPT [Concomitant]
     Dosage: 25MG/1300MG
     Dates: start: 20040518, end: 20040818
  5. ETANERCEPT [Concomitant]
     Dosage: 25MG/1700MG
     Dates: start: 20050421
  6. ETANERCEPT [Concomitant]
     Dates: start: 20060524
  7. ETANERCEPT [Concomitant]
     Dates: start: 20060830, end: 20070320
  8. METHOTREXATE [Concomitant]
     Indication: DRUG USE FOR UNKNOWN INDICATION
     Dates: start: 20040219

REACTIONS (2)
  - NAUSEA [None]
  - OSTEOARTHRITIS [None]
